FAERS Safety Report 7929451-5 (Version None)
Quarter: 2011Q4

REPORT INFORMATION
  Report Type: 
  Country: None (occurrence: None)
  Receive Date: 20111121
  Receipt Date: 20111115
  Transmission Date: 20120403
  Serious: Yes (Hospitalization)
  Sender: FDA-Public Use
  Company Number: US-BRISTOL-MYERS SQUIBB COMPANY-16231185

PATIENT
  Age: 58 Year
  Sex: Female

DRUGS (2)
  1. ORENCIA [Suspect]
     Dosage: LAST INF ON 07NOV2011
     Dates: start: 20090216
  2. CELEBREX [Suspect]

REACTIONS (6)
  - PYREXIA [None]
  - NECK MASS [None]
  - WEIGHT DECREASED [None]
  - PERICARDIAL EFFUSION [None]
  - DIARRHOEA [None]
  - INFLUENZA [None]
